FAERS Safety Report 10596871 (Version 3)
Quarter: 2014Q4

REPORT INFORMATION
  Report Type: Report from Study
  Country: US (occurrence: US)
  Receive Date: 20141120
  Receipt Date: 20141205
  Transmission Date: 20150529
  Serious: Yes (Hospitalization)
  Sender: FDA-Public Use
  Company Number: US-ACTELION-A-NJ2014-100747

PATIENT
  Age: 46 Year
  Sex: Female

DRUGS (5)
  1. VELETRI [Suspect]
     Active Substance: EPOPROSTENOL
     Dosage: 36 NG/KG, UNK
     Route: 042
     Dates: start: 20130420
  2. REVATIO [Concomitant]
     Active Substance: SILDENAFIL CITRATE
  3. VELETRI [Suspect]
     Active Substance: EPOPROSTENOL
     Indication: PULMONARY HYPERTENSION
     Dosage: 41 NG/KG, UNK
     Route: 042
     Dates: start: 20130405
  4. VELETRI [Suspect]
     Active Substance: EPOPROSTENOL
     Dosage: 30 NG/KG, PER MIN
     Route: 041
     Dates: start: 20140329
  5. VELETRI [Suspect]
     Active Substance: EPOPROSTENOL
     Dosage: 32 NG/KG, PER MIN
     Route: 041

REACTIONS (5)
  - Fluid retention [Unknown]
  - Weight increased [Unknown]
  - Oedema [Unknown]
  - Swelling [Unknown]
  - Dyspnoea [Unknown]
